FAERS Safety Report 8029471-9 (Version None)
Quarter: 2012Q1

REPORT INFORMATION
  Report Type: 
  Country: None (occurrence: None)
  Receive Date: 20120108
  Receipt Date: 20120105
  Transmission Date: 20120608
  Serious: Yes (Hospitalization)
  Sender: FDA-Public Use
  Company Number: US-VERTEX PHARMACEUTICALS INC.-AE-2012-000253

PATIENT
  Sex: Female

DRUGS (3)
  1. RIBAVIRIN [Concomitant]
     Indication: HEPATITIS C
  2. INCIVEK [Suspect]
     Indication: HEPATITIS C
     Route: 048
  3. INTERFERON [Concomitant]
     Indication: HEPATITIS C

REACTIONS (7)
  - ASTHENIA [None]
  - PULMONARY EMBOLISM [None]
  - DYSPNOEA [None]
  - HAEMOGLOBIN DECREASED [None]
  - FATIGUE [None]
  - THROMBOSIS [None]
  - PAIN [None]
